FAERS Safety Report 4743792-4 (Version None)
Quarter: 2005Q3

REPORT INFORMATION
  Report Type: 
  Country: None (occurrence: None)
  Receive Date: 20050809
  Receipt Date: 20050727
  Transmission Date: 20060218
  Serious: Yes (Hospitalization)
  Sender: FDA-Public Use
  Company Number: 2005FR-00152

PATIENT
  Age: 90 Year
  Sex: Male

DRUGS (4)
  1. ASPIRIN [Suspect]
     Indication: CEREBROVASCULAR ACCIDENT
     Dosage: 75MG, OD, ORAL
     Route: 048
     Dates: end: 20050202
  2. BENDROFLUAZIDE [Concomitant]
  3. PERINDOPRIL [Concomitant]
  4. BACLOFEN [Concomitant]

REACTIONS (3)
  - DUODENAL ULCER [None]
  - HAEMOGLOBIN DECREASED [None]
  - MELAENA [None]
